FAERS Safety Report 16841743 (Version 1)
Quarter: 2019Q3

REPORT INFORMATION
  Report Type: Spontaneous
  Country: DK (occurrence: DK)
  Receive Date: 20190923
  Receipt Date: 20190923
  Transmission Date: 20191005
  Serious: Yes (Other)
  Sender: FDA-Public Use
  Company Number: PHHY2019DK219554

PATIENT
  Age: 64 Year
  Sex: Female

DRUGS (1)
  1. MOMETASONE SANDOZ [Suspect]
     Active Substance: MOMETASONE
     Indication: RHINITIS ALLERGIC
     Dosage: 4 DF, QD
     Route: 045
     Dates: start: 20190301

REACTIONS (5)
  - Visual impairment [Recovering/Resolving]
  - Headache [Unknown]
  - Retinal oedema [Recovered/Resolved]
  - Vision blurred [Unknown]
  - Retinal vein occlusion [Recovering/Resolving]

NARRATIVE: CASE EVENT DATE: 2019
